FAERS Safety Report 5466150-6 (Version None)
Quarter: 2007Q3

REPORT INFORMATION
  Report Type: 
  Country: None (occurrence: None)
  Receive Date: 20070924
  Receipt Date: 20070914
  Transmission Date: 20080115
  Serious: Yes (Hospitalization)
  Sender: FDA-Public Use
  Company Number: US-AMGEN-US243429

PATIENT
  Sex: Male

DRUGS (1)
  1. ENBREL [Suspect]
     Indication: PUSTULAR PSORIASIS
     Route: 058
     Dates: start: 20050813

REACTIONS (4)
  - BULLOUS LUNG DISEASE [None]
  - COLLAPSE OF LUNG [None]
  - NASOPHARYNGITIS [None]
  - PNEUMONIA [None]
